FAERS Safety Report 23693835 (Version 1)
Quarter: 2024Q2

REPORT INFORMATION
  Report Type: Spontaneous
  Country: DE (occurrence: DE)
  Receive Date: 20240401
  Receipt Date: 20240401
  Transmission Date: 20240715
  Serious: Yes (Other)
  Sender: FDA-Public Use
  Company Number: DE-DESITIN-2018-02265

PATIENT
  Sex: Female

DRUGS (7)
  1. VALPROIC ACID [Suspect]
     Active Substance: VALPROIC ACID
     Indication: Severe myoclonic epilepsy of infancy
     Dosage: UNK
     Route: 065
     Dates: end: 2016
  2. L DOPA [Suspect]
     Active Substance: LEVODOPA
     Indication: Myoclonus
     Dosage: UNK
     Route: 065
  3. DIACOMIT [Suspect]
     Active Substance: STIRIPENTOL
     Indication: Severe myoclonic epilepsy of infancy
     Dosage: 750 MILLIGRAM, QD
     Route: 065
     Dates: start: 200904, end: 201108
  4. DIACOMIT [Suspect]
     Active Substance: STIRIPENTOL
     Dosage: 1000 MILLIGRAM, QD
     Route: 065
     Dates: start: 201109
  5. PIRACETAM [Concomitant]
     Active Substance: PIRACETAM
     Indication: Myoclonus
     Dosage: UNK
     Route: 065
  6. METHYLPHENIDATE [Concomitant]
     Active Substance: METHYLPHENIDATE
     Indication: Myoclonus
     Dosage: UNK
     Route: 065
  7. CLOBAZAM [Concomitant]
     Active Substance: CLOBAZAM
     Dosage: UNK
     Route: 065
     Dates: start: 2010

REACTIONS (7)
  - Myoclonus [Not Recovered/Not Resolved]
  - Dystonia [Not Recovered/Not Resolved]
  - Condition aggravated [Not Recovered/Not Resolved]
  - Hypotonia [Unknown]
  - Tremor [Not Recovered/Not Resolved]
  - Product use issue [Unknown]
  - Product use in unapproved indication [Unknown]

NARRATIVE: CASE EVENT DATE: 20100101
